FAERS Safety Report 8275929-7 (Version None)
Quarter: 2012Q2

REPORT INFORMATION
  Report Type: 
  Country: None (occurrence: None)
  Receive Date: 20120412
  Receipt Date: 20120405
  Transmission Date: 20120825
  Serious: No
  Sender: FDA-Public Use
  Company Number: US-PFIZER INC-2012087023

PATIENT
  Sex: Female

DRUGS (2)
  1. LYRICA [Suspect]
     Dosage: UNK
  2. XANAX [Suspect]
     Dosage: UNK

REACTIONS (3)
  - EATING DISORDER [None]
  - FIBROMYALGIA [None]
  - INSOMNIA [None]
